FAERS Safety Report 9113277 (Version 1)
Quarter: 2013Q1

REPORT INFORMATION
  Report Type: Spontaneous
  Country: US (occurrence: US)
  Receive Date: 20130211
  Receipt Date: 20130211
  Transmission Date: 20140127
  Serious: Yes (Other)
  Sender: FDA-Public Use
  Company Number: US-ELI_LILLY_AND_COMPANY-US201205007991

PATIENT
  Age: 52 None
  Sex: Female

DRUGS (8)
  1. HUMALOG 50% LISPRO, 50% NPL [Suspect]
     Indication: DIABETES MELLITUS
     Dosage: UNK UNK, BID
     Dates: start: 2012
  2. NEURONTIN [Concomitant]
     Dosage: 100 MG, EVERY 8 HRS
  3. METROPOLYN [Concomitant]
     Dosage: 25 MG, BID
  4. LISINOPRIL [Concomitant]
     Dosage: 2.5 MG, QD
  5. LANTUS [Concomitant]
  6. HUMULIN NPH [Suspect]
     Indication: DIABETES MELLITUS
     Dosage: 16 U, BID
     Dates: end: 201208
  7. HUMULIN REGULAR [Suspect]
     Indication: DIABETES MELLITUS
     Dosage: 10 U, BID
     Dates: end: 201208
  8. HUMULIN 30% REGULAR, 70% NPH [Suspect]
     Indication: DIABETES MELLITUS
     Dosage: UNK
     Dates: start: 201209, end: 201209

REACTIONS (9)
  - Diabetic neuropathy [Not Recovered/Not Resolved]
  - Type 2 diabetes mellitus [Unknown]
  - Blood insulin decreased [Unknown]
  - Hypoaesthesia [Not Recovered/Not Resolved]
  - Feeling abnormal [Unknown]
  - Anger [Unknown]
  - Skin papilloma [Unknown]
  - Nausea [Recovered/Resolved]
  - Renal impairment [Not Recovered/Not Resolved]
